FAERS Safety Report 4487985-2 (Version None)
Quarter: 2004Q4

REPORT INFORMATION
  Report Type: 
  Country: None (occurrence: None)
  Receive Date: 20041028
  Receipt Date: 20041013
  Transmission Date: 20050328
  Serious: Yes (Death)
  Sender: FDA-Public Use
  Company Number: KR-MERCK-0410KOR00020

PATIENT
  Age: 79 Year
  Sex: Female

DRUGS (1)
  1. VIOXX [Suspect]
     Indication: DRUG USE FOR UNKNOWN INDICATION
     Route: 048
     Dates: start: 20040722, end: 20041005

REACTIONS (1)
  - DEATH [None]
